FAERS Safety Report 17762922 (Version 1)
Quarter: 2020Q2

REPORT INFORMATION
  Report Type: Spontaneous
  Country: RU (occurrence: RU)
  Receive Date: 20200508
  Receipt Date: 20200508
  Transmission Date: 20200714
  Serious: Yes (Hospitalization)
  Sender: FDA-Public Use
  Company Number: RU-BAUSCH-BL-2020-013394

PATIENT
  Age: 26 Year
  Sex: Male

DRUGS (2)
  1. LUXFEN [Suspect]
     Active Substance: BRIMONIDINE TARTRATE
     Indication: PRODUCT USED FOR UNKNOWN INDICATION
     Route: 065
  2. FLOXAL [Suspect]
     Active Substance: OFLOXACIN
     Indication: PRODUCT USED FOR UNKNOWN INDICATION
     Route: 065

REACTIONS (5)
  - Cataract [Recovering/Resolving]
  - Drug ineffective [Recovering/Resolving]
  - Dermatitis atopic [Recovering/Resolving]
  - Open angle glaucoma [Recovering/Resolving]
  - Psoriatic arthropathy [Recovering/Resolving]
